FAERS Safety Report 4382694-2 (Version None)
Quarter: 2004Q2

REPORT INFORMATION
  Report Type: 
  Country: None (occurrence: None)
  Receive Date: 20040617
  Receipt Date: 20040609
  Transmission Date: 20050107
  Serious: Yes (Other)
  Sender: FDA-Public Use
  Company Number: USA-2004-0015534

PATIENT
  Age: 5 Month

DRUGS (4)
  1. THEOPHYLLINE [Suspect]
     Indication: ASTHMA
     Dosage: 18.6 MG/KG, DAILY, ORAL
     Route: 048
  2. AMINOPHYLLIN [Suspect]
     Indication: ASTHMA
     Dosage: 50 MG, RECTAL
     Route: 054
  3. TIPEDIPINE HIBENZATE (TIPEPIDINE HIBENZATE) [Concomitant]
  4. PEMIROLAST POTASSIUM (PEMIROLAST POTASSIUM) [Concomitant]

REACTIONS (2)
  - CONVULSION [None]
  - RESPIRATORY FAILURE [None]
